FAERS Safety Report 19412289 (Version 2)
Quarter: 2021Q2

REPORT INFORMATION
  Report Type: Report from Study
  Country: AU (occurrence: AU)
  Receive Date: 20210614
  Receipt Date: 20210617
  Transmission Date: 20210717
  Serious: Yes (Hospitalization)
  Sender: FDA-Public Use
  Company Number: AU-EISAI MEDICAL RESEARCH-EC-2021-094317

PATIENT
  Age: 20 Year
  Sex: Female
  Weight: 78.6 kg

DRUGS (15)
  1. LORATADINE. [Concomitant]
     Active Substance: LORATADINE
     Route: 065
     Dates: start: 20210322
  2. DOCUSATE SODIUM. [Concomitant]
     Active Substance: DOCUSATE SODIUM
     Dates: start: 20210322
  3. METAMUCIL REGULAR [Concomitant]
     Active Substance: HERBALS\PLANTAGO OVATA LEAF
     Route: 065
     Dates: start: 20210409
  4. CLONIDINE. [Concomitant]
     Active Substance: CLONIDINE
     Route: 065
     Dates: start: 20210322
  5. PREGABALIN. [Concomitant]
     Active Substance: PREGABALIN
     Route: 065
     Dates: start: 20210408
  6. FLUOXETINE [Concomitant]
     Active Substance: FLUOXETINE HYDROCHLORIDE
     Dates: start: 20210323
  7. NORTRIPTYLINE [Concomitant]
     Active Substance: NORTRIPTYLINE
     Route: 065
     Dates: start: 20210331
  8. ACETAMINOPHEN. [Concomitant]
     Active Substance: ACETAMINOPHEN
     Route: 065
     Dates: start: 20210414
  9. LOPERAMIDE [Concomitant]
     Active Substance: LOPERAMIDE
     Route: 065
     Dates: start: 20210416
  10. LAMOTRIGINE. [Concomitant]
     Active Substance: LAMOTRIGINE
     Route: 065
     Dates: start: 20210322
  11. OXYCODONE [Concomitant]
     Active Substance: OXYCODONE
     Dates: start: 20210322
  12. MICROLAX [Concomitant]
     Dates: start: 202103
  13. ONDANSETRON [Concomitant]
     Active Substance: ONDANSETRON
     Route: 065
     Dates: start: 20210322
  14. LENVATINIB [Suspect]
     Active Substance: LENVATINIB
     Indication: MENINGIOMA
     Route: 048
     Dates: start: 20210415, end: 20210511
  15. METHADONE HYDROCHLORIDE. [Concomitant]
     Active Substance: METHADONE HYDROCHLORIDE
     Dates: start: 20210526

REACTIONS (2)
  - Tachycardia [Not Recovered/Not Resolved]
  - Back pain [Not Recovered/Not Resolved]

NARRATIVE: CASE EVENT DATE: 20210605
